FAERS Safety Report 6589666-8 (Version None)
Quarter: 2010Q1

REPORT INFORMATION
  Report Type: 
  Country: None (occurrence: None)
  Receive Date: 20100219
  Receipt Date: 20100205
  Transmission Date: 20100710
  Serious: Yes (Death)
  Sender: FDA-Public Use
  Company Number: US-RANBAXY-2010RR-31055

PATIENT
  Age: 25 Year
  Sex: Male

DRUGS (7)
  1. SERTRALINE HCL [Suspect]
     Indication: ANXIETY DISORDER
     Route: 048
  2. METHADONE [Suspect]
  3. LORAZEPAM [Suspect]
  4. BUSPIRONE HCL [Suspect]
  5. GUAIFENESIN [Suspect]
  6. MARIJUANA [Suspect]
  7. MELATONIN [Suspect]

REACTIONS (4)
  - BRAIN OEDEMA [None]
  - DRUG ABUSE [None]
  - DRUG INTERACTION [None]
  - PULMONARY OEDEMA [None]
